FAERS Safety Report 22293612 (Version 1)
Quarter: 2023Q2

REPORT INFORMATION
  Report Type: Spontaneous
  Country: US (occurrence: US)
  Receive Date: 20230508
  Receipt Date: 20230508
  Transmission Date: 20230721
  Serious: Yes (Other)
  Sender: FDA-Public Use
  Company Number: US-SAMSUNG BIOEPIS-SB-2023-11950

PATIENT
  Age: 44 Year
  Sex: Female

DRUGS (34)
  1. INFLIXIMAB [Suspect]
     Active Substance: INFLIXIMAB
     Indication: Acquired porokeratosis
     Route: 042
  2. INFLIXIMAB [Suspect]
     Active Substance: INFLIXIMAB
     Indication: Hidradenitis
  3. ADALIMUMAB [Suspect]
     Active Substance: ADALIMUMAB
     Indication: Acquired porokeratosis
     Route: 058
  4. ADALIMUMAB [Suspect]
     Active Substance: ADALIMUMAB
     Indication: Hidradenitis
  5. METHOTREXATE [Concomitant]
     Active Substance: METHOTREXATE
     Indication: Acquired porokeratosis
     Route: 048
  6. METHOTREXATE [Concomitant]
     Active Substance: METHOTREXATE
     Indication: Hidradenitis
  7. GOLIMUMAB [Concomitant]
     Active Substance: GOLIMUMAB
     Indication: Acquired porokeratosis
     Route: 042
  8. GOLIMUMAB [Concomitant]
     Active Substance: GOLIMUMAB
     Indication: Hidradenitis
  9. MINOCYCLINE [Concomitant]
     Active Substance: MINOCYCLINE HYDROCHLORIDE
     Indication: Acquired porokeratosis
     Dosage: UNKNOWN
     Route: 065
  10. MINOCYCLINE [Concomitant]
     Active Substance: MINOCYCLINE HYDROCHLORIDE
     Indication: Hidradenitis
  11. DOXYCYCLINE [Concomitant]
     Active Substance: DOXYCYCLINE
     Indication: Acquired porokeratosis
     Dosage: UNKNOWN
     Route: 065
  12. DOXYCYCLINE [Concomitant]
     Active Substance: DOXYCYCLINE
     Indication: Hidradenitis
  13. CLINDAMYCIN [Concomitant]
     Active Substance: CLINDAMYCIN
     Indication: Acquired porokeratosis
     Dosage: UNKNOWN
     Route: 065
  14. CLINDAMYCIN [Concomitant]
     Active Substance: CLINDAMYCIN
     Indication: Hidradenitis
  15. MOXIFLOXACIN [Concomitant]
     Active Substance: MOXIFLOXACIN
     Indication: Acquired porokeratosis
     Dosage: UNKNOWN
     Route: 065
  16. MOXIFLOXACIN [Concomitant]
     Active Substance: MOXIFLOXACIN
     Indication: Hidradenitis
  17. RIFAMPIN [Concomitant]
     Active Substance: RIFAMPIN
     Indication: Acquired porokeratosis
     Dosage: UNKNOWN
     Route: 065
  18. RIFAMPIN [Concomitant]
     Active Substance: RIFAMPIN
     Indication: Hidradenitis
  19. METRONIDAZOLE [Concomitant]
     Active Substance: METRONIDAZOLE
     Indication: Acquired porokeratosis
     Dosage: UNKNOWN
     Route: 065
  20. METRONIDAZOLE [Concomitant]
     Active Substance: METRONIDAZOLE
     Indication: Hidradenitis
  21. ISOTRETINOIN [Concomitant]
     Active Substance: ISOTRETINOIN
     Indication: Acquired porokeratosis
     Route: 065
  22. ISOTRETINOIN [Concomitant]
     Active Substance: ISOTRETINOIN
     Indication: Hidradenitis
  23. TRIAMCINOLONE [Concomitant]
     Active Substance: TRIAMCINOLONE
     Indication: Acquired porokeratosis
     Dosage: UNKNOWN
     Route: 065
  24. TRIAMCINOLONE [Concomitant]
     Active Substance: TRIAMCINOLONE
     Indication: Hidradenitis
  25. CHOLESTEROL [Concomitant]
     Active Substance: CHOLESTEROL
     Indication: Acquired porokeratosis
     Dosage: UNKNOWN
     Route: 065
  26. CHOLESTEROL [Concomitant]
     Active Substance: CHOLESTEROL
     Indication: Hidradenitis
  27. LOVASTATIN [Concomitant]
     Active Substance: LOVASTATIN
     Indication: Acquired porokeratosis
     Dosage: UNKNOWN
     Route: 065
  28. LOVASTATIN [Concomitant]
     Active Substance: LOVASTATIN
     Indication: Hidradenitis
  29. DOXEPIN [Concomitant]
     Active Substance: DOXEPIN
     Indication: Acquired porokeratosis
     Dosage: UNKNOWN
     Route: 065
  30. DOXEPIN [Concomitant]
     Active Substance: DOXEPIN
     Indication: Hidradenitis
  31. ADAPALENE [Concomitant]
     Active Substance: ADAPALENE
     Indication: Acquired porokeratosis
     Dosage: UNKNOWN
     Route: 065
  32. ADAPALENE [Concomitant]
     Active Substance: ADAPALENE
     Indication: Hidradenitis
  33. PREDNISONE [Concomitant]
     Active Substance: PREDNISONE
     Indication: Acquired porokeratosis
     Dosage: UNKNOWN
     Route: 048
  34. PREDNISONE [Concomitant]
     Active Substance: PREDNISONE
     Indication: Hidradenitis

REACTIONS (3)
  - Hidradenitis [Unknown]
  - Therapeutic product effect incomplete [Unknown]
  - Off label use [Unknown]
